FAERS Safety Report 19065085 (Version 6)
Quarter: 2021Q3

REPORT INFORMATION
  Report Type: Report from Study
  Country: US (occurrence: US)
  Receive Date: 20210326
  Receipt Date: 20210729
  Transmission Date: 20211014
  Serious: No
  Sender: FDA-Public Use
  Company Number: NVSC2021US065056

PATIENT
  Age: 51 Year
  Sex: Female

DRUGS (1)
  1. ENTRESTO [Suspect]
     Active Substance: SACUBITRIL\VALSARTAN
     Indication: PRODUCT USED FOR UNKNOWN INDICATION
     Dosage: 100 MG, Q12H (49/51 MG)
     Route: 048
     Dates: start: 202102

REACTIONS (6)
  - Illness [Unknown]
  - Hypersensitivity [Unknown]
  - Palpitations [Recovering/Resolving]
  - Pruritus [Unknown]
  - Throat clearing [Unknown]
  - Nausea [Unknown]

NARRATIVE: CASE EVENT DATE: 20210318
